FAERS Safety Report 9189906 (Version 2)
Quarter: 2013Q2

REPORT INFORMATION
  Report Type: Spontaneous
  Country: BR (occurrence: BR)
  Receive Date: 20130326
  Receipt Date: 20130530
  Transmission Date: 20140414
  Serious: Yes (Death, Hospitalization, Other)
  Sender: FDA-Public Use
  Company Number: BR-PFIZER INC-2013092797

PATIENT
  Age: 65 Year
  Sex: Male

DRUGS (3)
  1. SUTENT [Suspect]
     Indication: RENAL CELL CARCINOMA
     Dosage: 50 MG, CYCLE 4 PER 2
     Route: 048
     Dates: start: 20130114
  2. SUTENT [Suspect]
     Dosage: 50 MG, ALTERNATE DAY
     Route: 048
     Dates: start: 20130310, end: 20130315
  3. DIPYRONE [Concomitant]
     Dosage: 1 TABLET, 3X/DAY

REACTIONS (8)
  - Death [Fatal]
  - Haematemesis [Unknown]
  - Hepatomegaly [Unknown]
  - Lung disorder [Unknown]
  - Skin wound [Unknown]
  - Decreased appetite [Unknown]
  - Insomnia [Unknown]
  - Abdominal pain [Unknown]
